FAERS Safety Report 11134275 (Version 1)
Quarter: 2015Q2

REPORT INFORMATION
  Report Type: Spontaneous
  Country: US (occurrence: US)
  Receive Date: 20150524
  Receipt Date: 20150524
  Transmission Date: 20150821
  Serious: Yes (Death)
  Sender: FDA-Public Use
  Company Number: US-ROCHE-1582712

PATIENT
  Sex: Female

DRUGS (1)
  1. ZELBORAF [Suspect]
     Active Substance: VEMURAFENIB
     Indication: PROSTATE CANCER
     Route: 048
     Dates: start: 20141018, end: 20150521

REACTIONS (1)
  - Death [Fatal]
